FAERS Safety Report 10023576 (Version 1)
Quarter: 2014Q1

REPORT INFORMATION
  Report Type: Spontaneous
  Country: US (occurrence: None)
  Receive Date: 20140319
  Receipt Date: 20140319
  Transmission Date: 20141002
  Serious: No
  Sender: FDA-Public Use
  Company Number: None

PATIENT
  Age: 62 Year
  Sex: Male

DRUGS (27)
  1. STRIBILD [Suspect]
     Indication: HIV INFECTION
     Route: 048
  2. FENTANYL [Concomitant]
  3. PERCODAN [Concomitant]
  4. OXYCONTIN [Concomitant]
  5. IBUPROFEN [Concomitant]
  6. TAMSULOSIN [Concomitant]
  7. LORAZEPAM [Concomitant]
  8. TIVACAY [Concomitant]
  9. LOSARTAN [Concomitant]
  10. SELZENTRY [Concomitant]
  11. PRAVASTATIN [Concomitant]
  12. LANSOPRAZOLE [Concomitant]
  13. RANITIDINE [Concomitant]
  14. SPIRIVA [Concomitant]
  15. B12 [Concomitant]
  16. DEPO TESTOSTERONE [Concomitant]
  17. IMIQUIMOD [Concomitant]
  18. CHLORDIAZEPOXIDE [Concomitant]
  19. PROAIR [Concomitant]
  20. ONDANSETRON [Concomitant]
  21. TERBINAFINE [Concomitant]
  22. BACLOFEN [Concomitant]
  23. AMPHETAMINE [Concomitant]
  24. FLAX SEED OIL [Concomitant]
  25. VITAMIN E/C [Concomitant]
  26. CENTRUM MVI [Concomitant]
  27. CALCIUM [Concomitant]

REACTIONS (1)
  - Vomiting [None]
